FAERS Safety Report 25216504 (Version 2)
Quarter: 2025Q3

REPORT INFORMATION
  Report Type: Spontaneous
  Country: US (occurrence: US)
  Receive Date: 20250419
  Receipt Date: 20250803
  Transmission Date: 20251020
  Serious: Yes (Death, Hospitalization, Other)
  Sender: ALEXION PHARMACEUTICALS
  Company Number: US-AstraZeneca-CH-00850118A

PATIENT
  Age: 73 Year
  Sex: Female

DRUGS (1)
  1. TRUQAP [Suspect]
     Active Substance: CAPIVASERTIB
     Route: 065

REACTIONS (9)
  - Death [Fatal]
  - Malaise [Unknown]
  - Fall [Unknown]
  - Head injury [Unknown]
  - Cerebrovascular accident [Unknown]
  - Breast cancer [Unknown]
  - Influenza like illness [Unknown]
  - Laboratory test abnormal [Unknown]
  - Off label use [Unknown]

NARRATIVE: CASE EVENT DATE: 20250212
